FAERS Safety Report 5533000-9 (Version None)
Quarter: 2007Q4

REPORT INFORMATION
  Report Type: 
  Country: None (occurrence: None)
  Receive Date: 20071204
  Receipt Date: 20071129
  Transmission Date: 20080405
  Serious: Yes (Other)
  Sender: FDA-Public Use
  Company Number: PHEH2007US14889

PATIENT
  Age: 61 Year
  Sex: Male

DRUGS (5)
  1. TEKTURNA [Suspect]
     Indication: HYPERTENSION
     Dosage: 150 MG, QD
     Route: 048
     Dates: start: 20071009, end: 20071001
  2. TEKTURNA [Suspect]
     Dosage: 300 MG, QD
     Route: 048
     Dates: start: 20071001, end: 20071105
  3. DIOVAN [Suspect]
  4. BENICAR [Concomitant]
     Dosage: 40/12.5
     Route: 048
  5. LISINOPRIL [Concomitant]
     Dosage: 10 MG, QD
     Route: 048

REACTIONS (4)
  - BLOOD PRESSURE INCREASED [None]
  - CHEST PAIN [None]
  - EPISTAXIS [None]
  - HEADACHE [None]
